FAERS Safety Report 4666714-3 (Version None)
Quarter: 2005Q2

REPORT INFORMATION
  Report Type: 
  Country: None (occurrence: None)
  Receive Date: 20050518
  Receipt Date: 20050509
  Transmission Date: 20051028
  Serious: Yes (Other)
  Sender: FDA-Public Use
  Company Number: 200510716BCC

PATIENT
  Age: 67 Year
  Sex: Female
  Weight: 81.6475 kg

DRUGS (2)
  1. ASPIRIN [Suspect]
     Dosage: SEE IMAGE
     Route: 048
     Dates: start: 20020101
  2. CALAN [Concomitant]

REACTIONS (5)
  - BLOOD DISORDER [None]
  - BLOOD PRESSURE INCREASED [None]
  - COAGULOPATHY [None]
  - EPISTAXIS [None]
  - HYPERTENSION [None]
